FAERS Safety Report 9818004 (Version 1)
Quarter: 2013Q4

REPORT INFORMATION
  Report Type: Spontaneous
  Country: US (occurrence: None)
  Receive Date: 20131223
  Receipt Date: 20131223
  Transmission Date: 20140711
  Serious: No
  Sender: FDA-Public Use
  Company Number: 219774

PATIENT
  Sex: Female

DRUGS (1)
  1. PICATO [Suspect]
     Indication: PRODUCT USED FOR UNKNOWN INDICATION
     Dates: start: 20121126

REACTIONS (9)
  - Eye swelling [None]
  - Application site vesicles [None]
  - Application site swelling [None]
  - Application site pain [None]
  - Application site erythema [None]
  - Ocular hyperaemia [None]
  - Incorrect dose administered [None]
  - Drug prescribing error [None]
  - Incorrect drug administration duration [None]
